FAERS Safety Report 23873223 (Version 1)
Quarter: 2024Q2

REPORT INFORMATION
  Report Type: Spontaneous
  Country: CA (occurrence: CA)
  Receive Date: 20240520
  Receipt Date: 20240520
  Transmission Date: 20240716
  Serious: Yes (Hospitalization)
  Sender: FDA-Public Use
  Company Number: CA-002147023-NVSC2024CA102423

PATIENT
  Age: 33 Year
  Sex: Female

DRUGS (3)
  1. KESIMPTA [Suspect]
     Active Substance: OFATUMUMAB
     Indication: Multiple sclerosis
     Dosage: 20 MG, QMO (SOLUTION SUBCUTANEOUS)
     Route: 058
  2. KESIMPTA [Suspect]
     Active Substance: OFATUMUMAB
     Dosage: 20 MG, ONCE/SINGLE (SOLUTION SUBCUTANEOUS)
     Route: 058
  3. KESIMPTA [Suspect]
     Active Substance: OFATUMUMAB
     Dosage: 20 MG, QW (SOLUTION SUBCUTANEOUS)
     Route: 058

REACTIONS (3)
  - Colitis ulcerative [Unknown]
  - Diarrhoea [Unknown]
  - Frequent bowel movements [Unknown]
